FAERS Safety Report 15835873 (Version 1)
Quarter: 2019Q1

REPORT INFORMATION
  Report Type: Spontaneous
  Country: US (occurrence: US)
  Receive Date: 20190117
  Receipt Date: 20190117
  Transmission Date: 20190417
  Serious: No
  Sender: FDA-Public Use
  Company Number: US-IPSEN BIOPHARMACEUTICALS, INC.-2019-00389

PATIENT
  Sex: Male
  Weight: 62.5 kg

DRUGS (1)
  1. SOMATULINE DEPOT [Suspect]
     Active Substance: LANREOTIDE ACETATE
     Indication: NEOPLASM MALIGNANT
     Route: 058
     Dates: start: 2018

REACTIONS (2)
  - Injection site nodule [Not Recovered/Not Resolved]
  - Product administered at inappropriate site [Unknown]
